FAERS Safety Report 6129347-8 (Version None)
Quarter: 2009Q1

REPORT INFORMATION
  Report Type: 
  Country: None (occurrence: None)
  Receive Date: 20090324
  Receipt Date: 20090318
  Transmission Date: 20090719
  Serious: Yes (Life-Threatening, Hospitalization)
  Sender: FDA-Public Use
  Company Number: ES-BAYER-200916441GPV

PATIENT
  Age: 93 Year
  Sex: Female

DRUGS (6)
  1. ADIRO [Suspect]
     Indication: ANGINA PECTORIS
     Route: 048
     Dates: end: 20080401
  2. METAMIZOL [Interacting]
     Indication: CHOLELITHIASIS
     Route: 048
     Dates: start: 20080211, end: 20080303
  3. CORDIPLAST [Concomitant]
     Indication: ANGINA PECTORIS
     Route: 062
  4. METFORMIN HCL [Concomitant]
     Indication: TYPE 2 DIABETES MELLITUS
     Dosage: UNIT DOSE: 850 MG
     Route: 048
  5. DIAMICRON [Concomitant]
     Indication: TYPE 2 DIABETES MELLITUS
     Route: 048
  6. ENALAPRIL [Concomitant]
     Indication: BLOOD PRESSURE INCREASED
     Route: 048
     Dates: end: 20080321

REACTIONS (3)
  - EPISTAXIS [None]
  - RECTAL HAEMORRHAGE [None]
  - THROMBOCYTOPENIA [None]
